FAERS Safety Report 20399913 (Version 2)
Quarter: 2022Q1

REPORT INFORMATION
  Report Type: Spontaneous
  Country: US (occurrence: US)
  Receive Date: 20220131
  Receipt Date: 20220201
  Transmission Date: 20220423
  Serious: No
  Sender: FDA-Public Use
  Company Number: US-ABBVIE-21K-163-3995712-00

PATIENT
  Age: 59 Year
  Sex: Female
  Weight: 41.314 kg

DRUGS (2)
  1. HUMIRA [Suspect]
     Active Substance: ADALIMUMAB
     Indication: Psoriatic arthropathy
     Route: 058
     Dates: start: 2014, end: 20210621
  2. HUMIRA [Suspect]
     Active Substance: ADALIMUMAB
     Indication: Arthritis

REACTIONS (15)
  - Off label use [Not Recovered/Not Resolved]
  - Immunodeficiency [Unknown]
  - Gingival swelling [Not Recovered/Not Resolved]
  - Eye disorder [Recovered/Resolved]
  - Lacrimation increased [Not Recovered/Not Resolved]
  - Ocular discomfort [Not Recovered/Not Resolved]
  - Ocular hyperaemia [Recovered/Resolved]
  - Eye swelling [Not Recovered/Not Resolved]
  - Visual impairment [Recovered/Resolved]
  - Arthritis [Not Recovered/Not Resolved]
  - Ophthalmic herpes simplex [Recovering/Resolving]
  - Eye pain [Not Recovered/Not Resolved]
  - Toothache [Recovering/Resolving]
  - Gingivitis [Not Recovered/Not Resolved]
  - Uveitis [Recovered/Resolved]

NARRATIVE: CASE EVENT DATE: 20190621
